FAERS Safety Report 23100552 (Version 1)
Quarter: 2023Q4

REPORT INFORMATION
  Report Type: Spontaneous
  Country: OM (occurrence: OM)
  Receive Date: 20231024
  Receipt Date: 20231024
  Transmission Date: 20240109
  Serious: Yes (Other)
  Sender: FDA-Public Use
  Company Number: OM-Merck Healthcare KGaA-2023481858

PATIENT
  Age: 68 Year
  Sex: Male

DRUGS (1)
  1. BAVENCIO [Suspect]
     Active Substance: AVELUMAB
     Indication: Bladder transitional cell carcinoma stage IV
     Dates: start: 20221128

REACTIONS (11)
  - Metabolic encephalopathy [Unknown]
  - Hyponatraemia [Unknown]
  - Dizziness [Unknown]
  - Dehydration [Unknown]
  - Hypophagia [Unknown]
  - Chronic obstructive pulmonary disease [Unknown]
  - Hypothyroidism [Unknown]
  - Adrenal insufficiency [Unknown]
  - Anaemia [Unknown]
  - Vomiting [Unknown]
  - Asthenia [Unknown]
